FAERS Safety Report 6057139-7 (Version None)
Quarter: 2009Q1

REPORT INFORMATION
  Report Type: 
  Country: None (occurrence: None)
  Receive Date: 20090129
  Receipt Date: 20081117
  Transmission Date: 20090719
  Serious: Yes (Life-Threatening, Hospitalization, Other)
  Sender: FDA-Public Use
  Company Number: US-MERCK-0702USA04419

PATIENT
  Age: 76 Year
  Sex: Male
  Weight: 99 kg

DRUGS (20)
  1. JANUVIA [Suspect]
     Indication: DIABETES MELLITUS INADEQUATE CONTROL
     Route: 048
     Dates: start: 20061205, end: 20061225
  2. JANUVIA [Suspect]
     Route: 048
     Dates: start: 20061120, end: 20061204
  3. JANUVIA [Suspect]
     Route: 048
     Dates: start: 20061027, end: 20061120
  4. ZOCOR [Suspect]
     Indication: HYPERLIPIDAEMIA
     Route: 048
     Dates: start: 20060801, end: 20061226
  5. ZOCOR [Suspect]
     Route: 048
     Dates: end: 20060801
  6. OLMESARTAN MEDOXOMIL [Concomitant]
     Indication: HYPERTENSION
     Route: 048
     Dates: end: 20061226
  7. OLMESARTAN MEDOXOMIL [Concomitant]
     Indication: RENAL FAILURE CHRONIC
     Route: 048
     Dates: end: 20061226
  8. ZETIA [Suspect]
     Indication: HYPERLIPIDAEMIA
     Route: 048
     Dates: start: 20060801, end: 20061226
  9. BUMETANIDE [Concomitant]
     Indication: CARDIAC FAILURE CONGESTIVE
     Route: 048
     Dates: end: 20060101
  10. INSULIN, BIPHASIC ISOPHANE [INJECTION] [Concomitant]
     Route: 065
  11. AMIODARONE [Concomitant]
     Route: 065
  12. ASPIRIN [Concomitant]
     Route: 065
  13. CARVEDILOL [Concomitant]
     Route: 065
  14. GLIPIZIDE [Concomitant]
     Route: 065
  15. LEVOTHYROXINE SODIUM [Concomitant]
     Route: 065
  16. METOLAZONE [Concomitant]
     Route: 065
     Dates: end: 20060101
  17. CLOPIDOGREL BISULFATE [Concomitant]
     Route: 065
  18. POTASSIUM CHLORIDE [Concomitant]
     Route: 065
  19. POTASSIUM CHLORIDE [Concomitant]
     Route: 065
  20. TERAZOSIN HYDROCHLORIDE [Concomitant]
     Route: 065

REACTIONS (9)
  - ASTHENIA [None]
  - BLOOD POTASSIUM INCREASED [None]
  - DECREASED APPETITE [None]
  - DIABETES MELLITUS INADEQUATE CONTROL [None]
  - DRUG INTERACTION [None]
  - GAIT DISTURBANCE [None]
  - PAIN IN EXTREMITY [None]
  - RENAL FAILURE ACUTE [None]
  - RHABDOMYOLYSIS [None]
